FAERS Safety Report 20131141 (Version 1)
Quarter: 2021Q4

REPORT INFORMATION
  Report Type: Spontaneous
  Country: US (occurrence: US)
  Receive Date: 20211130
  Receipt Date: 20211130
  Transmission Date: 20220303
  Serious: Yes (Life-Threatening, Other)
  Sender: FDA-Public Use
  Company Number: US-PURDUE PHARMA-USA-2021-0289559

PATIENT

DRUGS (1)
  1. DILAUDID [Suspect]
     Active Substance: HYDROMORPHONE HYDROCHLORIDE
     Indication: Pain
     Route: 048

REACTIONS (13)
  - Shock [Unknown]
  - Haemorrhage [Unknown]
  - Transient ischaemic attack [Unknown]
  - Cerebrovascular accident [Unknown]
  - Post-traumatic epilepsy [Unknown]
  - Heart rate increased [Unknown]
  - Hypertension [Unknown]
  - Epinephrine decreased [Unknown]
  - Feeding disorder [Unknown]
  - Weight decreased [Unknown]
  - Drug tolerance increased [Unknown]
  - Inadequate analgesia [Unknown]
  - Vomiting [Unknown]
